FAERS Safety Report 12439916 (Version 2)
Quarter: 2016Q2

REPORT INFORMATION
  Report Type: Report from Study
  Country: EC (occurrence: EC)
  Receive Date: 20160606
  Receipt Date: 20160606
  Transmission Date: 20160815
  Serious: Yes (Death)
  Sender: FDA-Public Use
  Company Number: PHHY2015EC111701

PATIENT
  Age: 44 Year
  Sex: Male

DRUGS (3)
  1. SANDOSTATIN LAR DEPOT [Suspect]
     Active Substance: OCTREOTIDE ACETATE
     Dosage: 20 MG, AFTER 38 DAYS FRIOM PREVIOSU APPLICATION
     Route: 030
     Dates: start: 20160121, end: 20160518
  2. SANDOSTATIN LAR DEPOT [Suspect]
     Active Substance: OCTREOTIDE ACETATE
     Dosage: 20 MG, AFTER 83 DAYS FRIOM PREVIOSU APPLICATION
     Route: 030
     Dates: start: 20150906
  3. SANDOSTATIN LAR DEPOT [Suspect]
     Active Substance: OCTREOTIDE ACETATE
     Indication: NEUROENDOCRINE TUMOUR
     Dosage: 20 MG, QMO
     Route: 030
     Dates: start: 20150319

REACTIONS (4)
  - Abdominal distension [Unknown]
  - Respiratory arrest [Fatal]
  - Inappropriate schedule of drug administration [Unknown]
  - Liver disorder [Unknown]

NARRATIVE: CASE EVENT DATE: 20150906
